FAERS Safety Report 5550232-4 (Version None)
Quarter: 2007Q4

REPORT INFORMATION
  Report Type: 
  Country: None (occurrence: None)
  Receive Date: 20071128
  Receipt Date: 20061009
  Transmission Date: 20080405
  Serious: Yes (Other)
  Sender: FDA-Public Use
  Company Number: 2006124472

PATIENT
  Age: 71 Year
  Sex: Male
  Weight: 72.5755 kg

DRUGS (7)
  1. LIPITOR [Suspect]
     Indication: LOW DENSITY LIPOPROTEIN
     Dosage: 20 MG (20 MG,1 IN 1 D)
     Dates: start: 20060701, end: 20061001
  2. FLOMAX [Concomitant]
  3. PROSCAR [Concomitant]
  4. ATACAND [Concomitant]
  5. ALLOPURINOL [Concomitant]
  6. ZETIA [Concomitant]
  7. MULTI-VITAMINS [Concomitant]

REACTIONS (1)
  - PLATELET COUNT DECREASED [None]
